FAERS Safety Report 9188009 (Version 1)
Quarter: 2013Q1

REPORT INFORMATION
  Report Type: Spontaneous
  Country: US (occurrence: US)
  Receive Date: 20130325
  Receipt Date: 20130325
  Transmission Date: 20140127
  Serious: No
  Sender: FDA-Public Use
  Company Number: US-MYLANLABS-2012S1025240

PATIENT
  Age: 61 Year
  Sex: Female
  Weight: 58.51 kg

DRUGS (12)
  1. FENTANYL TRANSDERMAL SYSTEM [Suspect]
     Indication: PAIN
     Dosage: CHANGED Q48H
     Route: 062
     Dates: start: 201210
  2. FENTANYL TRANSDERMAL SYSTEM [Suspect]
     Indication: BONE PAIN
     Dosage: CHANGED Q48H
     Route: 062
     Dates: start: 201210
  3. FENTANYL TRANSDERMAL SYSTEM [Suspect]
     Indication: HEADACHE
     Dosage: CHANGED Q48H
     Route: 062
     Dates: start: 201210
  4. FENTANYL TRANSDERMAL SYSTEM [Suspect]
     Indication: CONVULSION
     Dosage: CHANGED Q48H
     Route: 062
     Dates: start: 201210
  5. FENTANYL TRANSDERMAL SYSTEM [Suspect]
     Indication: PAIN
     Dosage: CHANGED Q48H
     Route: 062
     Dates: start: 201210
  6. FENTANYL TRANSDERMAL SYSTEM [Suspect]
     Indication: BONE PAIN
     Dosage: CHANGED Q48H
     Route: 062
     Dates: start: 201210
  7. FENTANYL TRANSDERMAL SYSTEM [Suspect]
     Indication: HEADACHE
     Dosage: CHANGED Q48H
     Route: 062
     Dates: start: 201210
  8. FENTANYL TRANSDERMAL SYSTEM [Suspect]
     Indication: CONVULSION
     Dosage: CHANGED Q48H
     Route: 062
     Dates: start: 201210
  9. LEXAPRO [Concomitant]
     Indication: DEPRESSION
     Dosage: 10-5 MG
  10. TRAZODONE [Concomitant]
     Indication: INSOMNIA
  11. XANAX [Concomitant]
     Indication: ANXIETY
  12. FIORINAL [Concomitant]
     Indication: HEADACHE

REACTIONS (10)
  - Drug ineffective [Not Recovered/Not Resolved]
  - Pain [Not Recovered/Not Resolved]
  - Bone pain [Not Recovered/Not Resolved]
  - Headache [Not Recovered/Not Resolved]
  - Weight decreased [Not Recovered/Not Resolved]
  - Application site rash [Not Recovered/Not Resolved]
  - Application site erythema [Not Recovered/Not Resolved]
  - Application site pain [Not Recovered/Not Resolved]
  - Reaction to drug excipients [Not Recovered/Not Resolved]
  - Hypersensitivity [Not Recovered/Not Resolved]
